FAERS Safety Report 6638395-0 (Version None)
Quarter: 2010Q1

REPORT INFORMATION
  Report Type: 
  Country: None (occurrence: None)
  Receive Date: 20100317
  Receipt Date: 20100308
  Transmission Date: 20100710
  Serious: Yes (Life-Threatening, Hospitalization, Other)
  Sender: FDA-Public Use
  Company Number: B0638225A

PATIENT
  Sex: Male

DRUGS (8)
  1. HYCAMTIN [Suspect]
     Dosage: 2.5MG PER DAY
     Route: 048
     Dates: start: 20091118
  2. OXYCONTIN [Concomitant]
     Indication: PAIN
     Dosage: 10MG TWICE PER DAY
     Route: 048
  3. OXYCODONE HCL [Concomitant]
     Indication: PAIN
     Dosage: 5MG AS REQUIRED
     Route: 048
  4. NEXIUM [Concomitant]
     Dosage: 40MG PER DAY
     Route: 048
  5. HYDROCORTISONE [Concomitant]
     Dosage: 20MG PER DAY
     Route: 048
  6. FORLAX [Concomitant]
     Dosage: 1SAC PER DAY
     Route: 048
  7. XANAX [Concomitant]
     Dosage: .25MG PER DAY
     Route: 048
  8. FORTIMEL [Concomitant]
     Dosage: 2UD PER DAY
     Route: 048

REACTIONS (7)
  - ABDOMINAL PAIN LOWER [None]
  - ANAEMIA [None]
  - COLITIS [None]
  - CONSTIPATION [None]
  - NEUTROPENIA [None]
  - PYREXIA [None]
  - THROMBOCYTOPENIA [None]
